FAERS Safety Report 15790319 (Version 4)
Quarter: 2024Q4

REPORT INFORMATION
  Report Type: Spontaneous
  Country: US (occurrence: US)
  Receive Date: 20190104
  Receipt Date: 20241112
  Transmission Date: 20250114
  Serious: Yes (Other)
  Sender: PFIZER
  Company Number: US-PFIZER INC-2018460621

PATIENT
  Age: 57 Year
  Sex: Female
  Weight: 147.42 kg

DRUGS (2)
  1. CYTOMEL [Suspect]
     Active Substance: LIOTHYRONINE SODIUM
     Indication: Menopause
     Dosage: 50 UG
  2. CYTOMEL [Suspect]
     Active Substance: LIOTHYRONINE SODIUM
     Indication: Hypothyroidism
     Dosage: UNK
     Route: 060
     Dates: start: 20241013

REACTIONS (14)
  - Myxoedema [Unknown]
  - Drug ineffective [Unknown]
  - Weight increased [Unknown]
  - Malaise [Unknown]
  - Renal disorder [Unknown]
  - Glomerular filtration rate increased [Unknown]
  - Blood iron decreased [Unknown]
  - Swelling [Unknown]
  - Illness [Unknown]
  - Therapeutic product effect delayed [Unknown]
  - Swollen tongue [Unknown]
  - Swelling face [Unknown]
  - Incorrect route of product administration [Unknown]
  - Extra dose administered [Unknown]

NARRATIVE: CASE EVENT DATE: 20180101
